FAERS Safety Report 14154357 (Version 2)
Quarter: 2017Q4

REPORT INFORMATION
  Report Type: Spontaneous
  Country: IT (occurrence: IT)
  Receive Date: 20171102
  Receipt Date: 20171124
  Transmission Date: 20180321
  Serious: Yes (Death)
  Sender: FDA-Public Use
  Company Number: IT-ELI_LILLY_AND_COMPANY-IT201710011982

PATIENT
  Age: 70 Year
  Sex: Male

DRUGS (3)
  1. LARTRUVO [Suspect]
     Active Substance: OLARATUMAB
     Indication: LIPOSARCOMA
     Dosage: 15 MG/KG, UNKNOWN
     Route: 042
  2. DOXORUBICIN [Suspect]
     Active Substance: DOXORUBICIN
     Indication: SOFT TISSUE SARCOMA
     Dosage: UNK UNK, UNKNOWN
     Route: 042
  3. LARTRUVO [Suspect]
     Active Substance: OLARATUMAB
     Indication: SOFT TISSUE SARCOMA

REACTIONS (1)
  - Death [Fatal]
